FAERS Safety Report 25674471 (Version 1)
Quarter: 2025Q3

REPORT INFORMATION
  Report Type: Spontaneous
  Country: CA (occurrence: CA)
  Receive Date: 20250813
  Receipt Date: 20250813
  Transmission Date: 20251021
  Serious: Yes (Other)
  Sender: CELLTRION
  Company Number: CA-CELLTRION INC.-2025CA027361

PATIENT

DRUGS (2)
  1. YUFLYMA [Suspect]
     Active Substance: ADALIMUMAB-AATY
     Indication: Psoriatic arthropathy
     Dosage: MAINTENANCE AT 40 MG EVERY 7 DAYS - CURRENT
     Route: 058
     Dates: start: 20241111
  2. YUFLYMA [Suspect]
     Active Substance: ADALIMUMAB-AATY

REACTIONS (2)
  - Rheumatoid arthritis [Unknown]
  - Off label use [Unknown]
